FAERS Safety Report 9551646 (Version 1)
Quarter: 2013Q3

REPORT INFORMATION
  Report Type: Spontaneous
  Country: US (occurrence: None)
  Receive Date: 20130724
  Receipt Date: 20130724
  Transmission Date: 20140515
  Serious: Yes (Hospitalization)
  Sender: FDA-Public Use
  Company Number: PHEH2012US010114

PATIENT
  Sex: Female

DRUGS (10)
  1. GLEEVEC (IMATINIB) UNKNOWN [Suspect]
     Indication: CHRONIC MYELOID LEUKAEMIA
  2. NEXUIM (ESOMEPRAZOLE MAGENSIUM) [Concomitant]
  3. CLORDIAZIDEPOXIDE (CHLORDIAZEPOXIDE) [Concomitant]
  4. CARVEDILOL (CARVEDILOL) [Concomitant]
  5. HYDROXYZINE (HYDROXYZINE) [Concomitant]
  6. RISPERDAL (RISPERIDONE) [Concomitant]
  7. SIMVASTATIN (SIMVASTATIN) [Concomitant]
  8. PLAVIX (CLOPIDOGREL SULFATE) [Concomitant]
  9. LISINOPRIL (LISINOPRIL [Concomitant]
  10. ALLEGRA [Concomitant]

REACTIONS (5)
  - Renal failure [None]
  - Presyncope [None]
  - Anaemia [None]
  - Nausea [None]
  - Dehydration [None]
